FAERS Safety Report 6410584-X (Version None)
Quarter: 2009Q4

REPORT INFORMATION
  Report Type: 
  Country: None (occurrence: None)
  Receive Date: 20091016
  Receipt Date: 20091006
  Transmission Date: 20100525
  Serious: Yes (Hospitalization)
  Sender: FDA-Public Use
  Company Number: 8053061

PATIENT
  Age: 34 Year
  Sex: Female

DRUGS (1)
  1. CIMZIA [Suspect]
     Indication: RHEUMATOID ARTHRITIS
     Dates: start: 20090925

REACTIONS (5)
  - FALL [None]
  - JOINT INJURY [None]
  - PAIN [None]
  - PERIPHERAL ARTERY DISSECTION [None]
  - VASOSPASM [None]
